FAERS Safety Report 6336181-2 (Version None)
Quarter: 2009Q3

REPORT INFORMATION
  Report Type: 
  Country: None (occurrence: None)
  Receive Date: 20090831
  Receipt Date: 20090831
  Transmission Date: 20100115
  Serious: Yes (Death, Life-Threatening, Hospitalization)
  Sender: FDA-Public Use
  Company Number: None

PATIENT
  Sex: Male
  Weight: 79 kg

DRUGS (7)
  1. TEMODAR [Suspect]
     Indication: GLIOBLASTOMA MULTIFORME
     Dosage: 180 MG (100 MG/M2) QD FOR 21/28 DAYS ORAL
     Route: 048
     Dates: start: 20090210, end: 20090302
  2. TEMODAR [Suspect]
  3. CADUATE [Concomitant]
  4. CITRATE OF MAGNESIA [Concomitant]
  5. DECADRON [Concomitant]
  6. REGLAN [Concomitant]
  7. LEVAQUIN [Concomitant]

REACTIONS (8)
  - CONVULSION [None]
  - DISEASE PROGRESSION [None]
  - GAIT DISTURBANCE [None]
  - HYPERGLYCAEMIA [None]
  - LYMPHOPENIA [None]
  - NEUTROPHIL COUNT ABNORMAL [None]
  - PLATELET COUNT ABNORMAL [None]
  - SPEECH DISORDER [None]
